FAERS Safety Report 9908113 (Version 1)
Quarter: 2014Q1

REPORT INFORMATION
  Report Type: Spontaneous
  Country: US (occurrence: None)
  Receive Date: 20140212
  Receipt Date: 20140212
  Transmission Date: 20141002
  Serious: Yes (Other)
  Sender: FDA-Public Use
  Company Number: None

PATIENT
  Sex: 0

DRUGS (13)
  1. ZETIA [Suspect]
     Indication: BLOOD CHOLESTEROL INCREASED
     Route: 048
     Dates: start: 201206, end: 201309
  2. FINASTERIDE [Concomitant]
  3. OMPEPRAZOLE [Concomitant]
  4. SERTRALINE [Concomitant]
  5. ASPIRIN [Concomitant]
  6. B COMPLEX VITAMIN [Concomitant]
  7. GLUCOSAMINE [Concomitant]
  8. FISH OIL [Concomitant]
  9. MULTIVITAMIN [Concomitant]
  10. CALCIUM [Concomitant]
  11. MAGENSIUM [Concomitant]
  12. POTASSIUM [Concomitant]
  13. COQ10 [Concomitant]

REACTIONS (3)
  - Depression [None]
  - Confusional state [None]
  - Feeling abnormal [None]
